FAERS Safety Report 7048568-3 (Version None)
Quarter: 2010Q4

REPORT INFORMATION
  Report Type: 
  Country: None (occurrence: None)
  Receive Date: 20101008
  Receipt Date: 20100924
  Transmission Date: 20110411
  Serious: Yes (Other)
  Sender: FDA-Public Use
  Company Number: 019390

PATIENT
  Age: 26 Year
  Sex: Female

DRUGS (1)
  1. CERTOLIZUMAB PEGOL [Suspect]
     Indication: CROHN'S DISEASE
     Dosage: (SUBCUTANEOUS)
     Route: 058

REACTIONS (5)
  - ALOPECIA EFFLUVIUM [None]
  - CROHN'S DISEASE [None]
  - HEPATIC ENZYME INCREASED [None]
  - PSORIASIS [None]
  - PYREXIA [None]
